FAERS Safety Report 6484683-0 (Version None)
Quarter: 2009Q4

REPORT INFORMATION
  Report Type: 
  Country: None (occurrence: None)
  Receive Date: 20091204
  Receipt Date: 20091123
  Transmission Date: 20100525
  Serious: Yes (Life-Threatening, Hospitalization)
  Sender: FDA-Public Use
  Company Number: 8053839

PATIENT
  Age: 45 Year
  Sex: Male
  Weight: 84.7 kg

DRUGS (11)
  1. KEPPRA [Suspect]
     Indication: CONVULSION
     Dosage: 500 MG 2/D IV
     Route: 042
     Dates: start: 20091010, end: 20091022
  2. PERFALGAN [Suspect]
     Indication: PYREXIA
     Dosage: 1 G 4/D IV
     Route: 042
     Dates: start: 20091010, end: 20091019
  3. HYPNOVEL [Concomitant]
  4. FENTANYL [Concomitant]
  5. NEXIUM [Concomitant]
  6. AUGMENTIN [Concomitant]
  7. TAZOCILLINE [Concomitant]
  8. CIFLOX [Concomitant]
  9. VANCOMYCIN [Concomitant]
  10. KABIVEN [Concomitant]
  11. NORADRENALINE [Concomitant]

REACTIONS (4)
  - HEPATIC FAILURE [None]
  - HYPERTHERMIA [None]
  - PANCREATITIS ACUTE [None]
  - SEPTIC SHOCK [None]
